FAERS Safety Report 16356885 (Version 3)
Quarter: 2019Q3

REPORT INFORMATION
  Report Type: Spontaneous
  Country: JP (occurrence: JP)
  Receive Date: 20190527
  Receipt Date: 20190716
  Transmission Date: 20191004
  Serious: Yes (Hospitalization, Other)
  Sender: FDA-Public Use
  Company Number: JP-GLAXOSMITHKLINE-JP2019JPN091061

PATIENT
  Age: 69 Year
  Sex: Female
  Weight: 36 kg

DRUGS (1)
  1. VALTREX [Suspect]
     Active Substance: VALACYCLOVIR HYDROCHLORIDE
     Indication: ORAL HERPES
     Dosage: 500 MG, BID
     Route: 048
     Dates: start: 20190516, end: 20190519

REACTIONS (5)
  - Dysarthria [Recovered/Resolved]
  - Inappropriate schedule of product administration [Unknown]
  - Altered state of consciousness [Recovered/Resolved]
  - Depressed level of consciousness [Recovered/Resolved]
  - Prescribed overdose [Unknown]

NARRATIVE: CASE EVENT DATE: 20190516
